FAERS Safety Report 9729735 (Version 1)
Quarter: 2013Q4

REPORT INFORMATION
  Report Type: Spontaneous
  Country: US (occurrence: US)
  Receive Date: 20131204
  Receipt Date: 20131204
  Transmission Date: 20140711
  Serious: No
  Sender: FDA-Public Use
  Company Number: US-GILEAD-2009-0021898

PATIENT
  Sex: Female
  Weight: 104.78 kg

DRUGS (13)
  1. LETAIRIS [Suspect]
     Indication: PULMONARY ARTERIAL HYPERTENSION
     Route: 048
     Dates: start: 20090112
  2. LASIX [Concomitant]
  3. PRINIVIL [Concomitant]
  4. NOVOLIN 70/30 [Concomitant]
  5. AMARYL [Concomitant]
  6. NEURONTIN [Concomitant]
  7. RESTORIL [Concomitant]
  8. GLUCOPHAGE [Concomitant]
  9. NEXIUM [Concomitant]
  10. FISH OIL [Concomitant]
  11. VITAMIN B-6 [Concomitant]
  12. VITAMIN E [Concomitant]
  13. ASPIRIN [Concomitant]

REACTIONS (1)
  - Hot flush [Not Recovered/Not Resolved]
